FAERS Safety Report 6231119-0 (Version None)
Quarter: 2009Q2

REPORT INFORMATION
  Report Type: 
  Country: None (occurrence: None)
  Receive Date: 20090611
  Receipt Date: 20090526
  Transmission Date: 20091009
  Serious: Yes (Other)
  Sender: FDA-Public Use
  Company Number: M-09-0475

PATIENT
  Age: 42 Year
  Sex: Male

DRUGS (3)
  1. ESTRADIOL [Suspect]
     Indication: TRANSGENDER HORMONAL THERAPY
     Dosage: 100 MG, QD, TRANSDERM.
     Route: 062
  2. SPIRONOLACTONE [Suspect]
     Indication: TRANSGENDER HORMONAL THERAPY
     Dosage: 200 MG, QD, PO
     Route: 048
  3. ETHINYL ESTRADIOL TAB [Suspect]
     Indication: TRANSGENDER HORMONAL THERAPY
     Dosage: 30 MCG, QD, PO
     Route: 048

REACTIONS (4)
  - DIZZINESS [None]
  - GYNAECOMASTIA [None]
  - PULMONARY EMBOLISM [None]
  - SELF-MEDICATION [None]
